FAERS Safety Report 9333917 (Version 1)
Quarter: 2013Q2

REPORT INFORMATION
  Report Type: Spontaneous
  Country: GB (occurrence: None)
  Receive Date: 20130604
  Receipt Date: 20130604
  Transmission Date: 20140414
  Serious: Yes (Other)
  Sender: FDA-Public Use
  Company Number: GB-1198442

PATIENT
  Sex: Female

DRUGS (2)
  1. CILOXAN [Suspect]
     Dosage: 3 DAYS UNTIL UNKNOWN?
  2. PREDNISOLONE ACETATE 1% [Suspect]
     Dosage: TO UNKNOWN?

REACTIONS (2)
  - Polyneuropathy [None]
  - Malaise [None]
